FAERS Safety Report 16253817 (Version 1)
Quarter: 2019Q2

REPORT INFORMATION
  Report Type: Spontaneous
  Country: NL (occurrence: NL)
  Receive Date: 20190430
  Receipt Date: 20190430
  Transmission Date: 20190711
  Serious: Yes (Other)
  Sender: FDA-Public Use
  Company Number: NL-TEVA-2019-NL-1042545

PATIENT
  Age: 31 Month
  Sex: Female
  Weight: 12 kg

DRUGS (2)
  1. CHLOORAMFENICOL OOGZALF, 10 MG/G (MILLIGRAM PER GRAM) [Suspect]
     Active Substance: CHLORAMPHENICOL
     Indication: EYE INFLAMMATION
     Dosage: 4 TIMES PER DAY DASH IN EYE.
     Dates: start: 20190322, end: 20190323
  2. AMOXICILINE SANDOZ FORTE 250MG/5ML [Concomitant]
     Active Substance: AMOXICILLIN
     Dosage: 3 TIMES DAILY 4ML

REACTIONS (1)
  - Eye haemorrhage [Recovered/Resolved]

NARRATIVE: CASE EVENT DATE: 20190323
